FAERS Safety Report 16162895 (Version 3)
Quarter: 2019Q2

REPORT INFORMATION
  Report Type: Spontaneous
  Country: DE (occurrence: DE)
  Receive Date: 20190405
  Receipt Date: 20190627
  Transmission Date: 20190711
  Serious: Yes (Death, Hospitalization, Other)
  Sender: FDA-Public Use
  Company Number: DE-ACCORD-118098

PATIENT
  Age: 82 Year
  Sex: Male

DRUGS (8)
  1. XARELTO [Concomitant]
     Active Substance: RIVAROXABAN
     Indication: ATRIAL FIBRILLATION
     Dosage: 0-0-1
  2. BISOPROLOL [Concomitant]
     Active Substance: BISOPROLOL
     Indication: TACHYCARDIA
     Dosage: 1-0-1
     Dates: start: 20190112
  3. RAMIPRIL. [Suspect]
     Active Substance: RAMIPRIL
     Indication: HYPERTENSION
     Dosage: DAILY DOSE: 10 MG MILLGRAM(S) EVERY DAYS
     Dates: start: 20190112
  4. NAPROXEN. [Suspect]
     Active Substance: NAPROXEN
     Indication: ARTHRITIS
     Dates: start: 20190128, end: 20190129
  5. DIGITOXIN [Concomitant]
     Active Substance: DIGITOXIN
     Indication: TACHYCARDIA
     Dosage: 0.07, 1-0-0
  6. HYDROCHLOROTHIAZIDE/RAMIPRIL [Concomitant]
     Dosage: 5 MG MILLIGRAM(S),1-0-0
  7. TORASEMIDE [Concomitant]
     Active Substance: TORSEMIDE
     Dosage: 1-1-1
  8. AMLODIPINE [Concomitant]
     Active Substance: AMLODIPINE BESYLATE
     Dosage: 1-0-0

REACTIONS (4)
  - Toxic epidermal necrolysis [Fatal]
  - Staphylococcal sepsis [Fatal]
  - Staphylococcal scalded skin syndrome [Fatal]
  - Erysipelas [Fatal]

NARRATIVE: CASE EVENT DATE: 20190130
